FAERS Safety Report 20348291 (Version 1)
Quarter: 2022Q1

REPORT INFORMATION
  Report Type: Spontaneous
  Country: FR (occurrence: FR)
  Receive Date: 20220119
  Receipt Date: 20220119
  Transmission Date: 20220424
  Serious: Yes (Hospitalization)
  Sender: FDA-Public Use
  Company Number: None

PATIENT
  Age: 56 Year
  Sex: Male
  Weight: 73 kg

DRUGS (7)
  1. DEXAMETHASONE [Suspect]
     Active Substance: DEXAMETHASONE
     Indication: COVID-19
     Route: 042
     Dates: start: 20210417, end: 20210426
  2. CEFOTAXIME SODIUM [Suspect]
     Active Substance: CEFOTAXIME SODIUM
     Indication: Bacterial infection
     Route: 042
     Dates: start: 20210417, end: 20210422
  3. OXAZEPAM [Concomitant]
     Active Substance: OXAZEPAM
     Indication: Product used for unknown indication
     Dosage: 10 MG X3/J
     Route: 048
     Dates: start: 20210419, end: 20210420
  4. PIPERACILLIN SODIUM [Concomitant]
     Active Substance: PIPERACILLIN SODIUM
     Indication: Superinfection bacterial
     Route: 042
     Dates: start: 20210421, end: 20210426
  5. TAZOBACTAM [Concomitant]
     Active Substance: TAZOBACTAM
     Indication: Superinfection bacterial
     Route: 042
     Dates: start: 20210421, end: 20210426
  6. LOXAPINE SUCCINATE [Concomitant]
     Active Substance: LOXAPINE SUCCINATE
     Indication: Product used for unknown indication
     Route: 048
     Dates: start: 20210419, end: 20210422
  7. LOVENOX 4000 [Concomitant]
     Indication: Product used for unknown indication
     Dosage: 4000 UI X 2/J
     Route: 058
     Dates: start: 20210417, end: 20210428

REACTIONS (1)
  - Mixed liver injury [Recovered/Resolved]

NARRATIVE: CASE EVENT DATE: 20210419
